FAERS Safety Report 6749496-0 (Version None)
Quarter: 2010Q2

REPORT INFORMATION
  Report Type: 
  Country: None (occurrence: None)
  Receive Date: 20100527
  Receipt Date: 20100527
  Transmission Date: 20101027
  Serious: Yes (Other)
  Sender: FDA-Public Use
  Company Number: None

PATIENT
  Sex: Male
  Weight: 72.5755 kg

DRUGS (2)
  1. ASACOL HD [Suspect]
     Indication: COLITIS
     Dosage: 3 TABLETS 1 TIME A DAY
     Dates: start: 20100513
  2. ASACOL HD [Suspect]
     Indication: COLITIS
     Dosage: 3 TABLETS 1 TIME A DAY
     Dates: start: 20100514

REACTIONS (1)
  - RASH [None]
